FAERS Safety Report 7265096-0 (Version None)
Quarter: 2011Q1

REPORT INFORMATION
  Report Type: 
  Country: None (occurrence: None)
  Receive Date: 20110131
  Receipt Date: 20110125
  Transmission Date: 20110831
  Serious: Yes (Hospitalization, Other)
  Sender: FDA-Public Use
  Company Number: FR-GENZYME-FLUD-1000667

PATIENT
  Age: 61 Year
  Sex: Male

DRUGS (10)
  1. FLUDARA [Suspect]
  2. FLUDARA [Suspect]
  3. FLUDARA [Suspect]
  4. RITUXIMAB [Suspect]
  5. RITUXIMAB [Suspect]
  6. FLUDARA [Suspect]
     Indication: WALDENSTROM'S MACROGLOBULINAEMIA RECURRENT
     Dosage: UNK
     Route: 065
  7. FLUDARA [Suspect]
  8. RITUXIMAB [Suspect]
  9. RITUXIMAB [Suspect]
     Indication: WALDENSTROM'S MACROGLOBULINAEMIA RECURRENT
     Dosage: 5 CYCLES
     Route: 065
  10. RITUXIMAB [Suspect]

REACTIONS (9)
  - HYPERTHERMIA [None]
  - BICYTOPENIA [None]
  - CHOLESTASIS [None]
  - TOXIC SKIN ERUPTION [None]
  - DIARRHOEA [None]
  - SEPTIC SHOCK [None]
  - GRAFT VERSUS HOST DISEASE [None]
  - DERMATITIS EXFOLIATIVE [None]
  - TACHYCARDIA [None]
